FAERS Safety Report 6970107-3 (Version None)
Quarter: 2010Q3

REPORT INFORMATION
  Report Type: 
  Country: None (occurrence: None)
  Receive Date: 20100908
  Receipt Date: 20100903
  Transmission Date: 20110219
  Serious: Yes (Other)
  Sender: FDA-Public Use
  Company Number: GB-TEVA-247331ISR

PATIENT
  Age: 36 Year
  Sex: Female

DRUGS (2)
  1. TERBINAFINE HCL [Suspect]
     Indication: ONYCHOMYCOSIS
     Route: 048
     Dates: start: 20100629, end: 20100701
  2. MEDROXYPROGESTERONE ACETATE [Interacting]
     Indication: CONTRACEPTION
     Route: 030

REACTIONS (2)
  - DRUG INTERACTION [None]
  - METRORRHAGIA [None]
